FAERS Safety Report 16752467 (Version 1)
Quarter: 2019Q3

REPORT INFORMATION
  Report Type: Spontaneous
  Country: CA (occurrence: CA)
  Receive Date: 20190828
  Receipt Date: 20190828
  Transmission Date: 20191005
  Serious: Yes (Death, Hospitalization, Other)
  Sender: FDA-Public Use
  Company Number: CA-TEVA-2019-CA-1098216

PATIENT
  Age: 77 Year
  Sex: Male

DRUGS (5)
  1. MESALAZINE [Suspect]
     Active Substance: MESALAMINE
     Indication: COLITIS
     Route: 065
  2. INFLIXIMAB [Suspect]
     Active Substance: INFLIXIMAB
     Indication: COLITIS
     Route: 065
  3. INFLIXIMAB [Suspect]
     Active Substance: INFLIXIMAB
     Indication: COLITIS ULCERATIVE
     Route: 042
  4. AZATHIOPRINE. [Suspect]
     Active Substance: AZATHIOPRINE
     Indication: COLITIS
     Route: 065
  5. PREDNISONE. [Suspect]
     Active Substance: PREDNISONE
     Indication: STEROID THERAPY
     Route: 065

REACTIONS (12)
  - Cytomegalovirus infection [Fatal]
  - Drug ineffective [Fatal]
  - Histoplasmosis [Fatal]
  - Drug use disorder [Fatal]
  - Dyspnoea [Fatal]
  - Hypoxia [Fatal]
  - Pulmonary alveolar haemorrhage [Fatal]
  - Cytomegalovirus colitis [Fatal]
  - Rectal tenesmus [Fatal]
  - Diarrhoea haemorrhagic [Fatal]
  - Haemophagocytic lymphohistiocytosis [Fatal]
  - Cytomegalovirus viraemia [Fatal]
